FAERS Safety Report 15965130 (Version 2)
Quarter: 2019Q1

REPORT INFORMATION
  Report Type: Spontaneous
  Country: US (occurrence: US)
  Receive Date: 20190215
  Receipt Date: 20190221
  Transmission Date: 20190418
  Serious: Yes (Other)
  Sender: FDA-Public Use
  Company Number: US-APOTEX-2019AP007733

PATIENT
  Age: 19 Year
  Sex: Female

DRUGS (3)
  1. MYCOPHENOLATE [Suspect]
     Active Substance: MYCOPHENOLIC ACID
     Indication: THROMBOCYTOPENIA
     Dosage: UNK
     Route: 065
  2. RITUXIMAB. [Suspect]
     Active Substance: RITUXIMAB
     Indication: THROMBOCYTOPENIA
     Dosage: UNK (2 COURSES OF RITUXIMAB)
     Route: 065
  3. IMMUNOGLOBULIN                     /00025201/ [Suspect]
     Active Substance: HUMAN IMMUNOGLOBULIN G
     Indication: THROMBOCYTOPENIA
     Dosage: UNK (HIGH DOSE IVIG)
     Route: 042

REACTIONS (1)
  - Drug ineffective [Unknown]
